FAERS Safety Report 6242430-1 (Version None)
Quarter: 2009Q2

REPORT INFORMATION
  Report Type: 
  Country: None (occurrence: None)
  Receive Date: 20090624
  Receipt Date: 20090617
  Transmission Date: 20091009
  Serious: Yes (Congenital Anomaly)
  Sender: FDA-Public Use
  Company Number: GB-JNJFOC-20090607034

PATIENT

DRUGS (3)
  1. OXYBUTYNIN CHLORIDE [Suspect]
     Indication: DRUG EXPOSURE DURING PREGNANCY
  2. CEPHALEXIN [Concomitant]
     Route: 065
  3. DESMOPRESSIN ACETATE [Concomitant]
     Route: 065

REACTIONS (1)
  - CLEFT LIP AND PALATE [None]
